FAERS Safety Report 4443953-8 (Version None)
Quarter: 2004Q3

REPORT INFORMATION
  Report Type: 
  Country: None (occurrence: None)
  Receive Date: 20040729
  Receipt Date: 20040521
  Transmission Date: 20050211
  Serious: Yes (Hospitalization)
  Sender: FDA-Public Use
  Company Number: US-JNJFOC-20040505538

PATIENT
  Age: 17 Year
  Sex: Female

DRUGS (8)
  1. RISPERDAL [Suspect]
     Indication: MAJOR DEPRESSION
     Dosage: 2 MG, 4 IN 1 DAY, ORAL
     Route: 048
     Dates: start: 20031001
  2. EFFEXOR [Suspect]
     Indication: DRUG USE FOR UNKNOWN INDICATION
     Dosage: PATIENTS TOOK 17 TABLETS
  3. SEROQUEL [Concomitant]
  4. STRATTERA (ALL OTHER THERAPUETIC PRODUCTS) [Concomitant]
  5. DEPAKOTE [Concomitant]
  6. SYNTHROID [Concomitant]
  7. WELLBUTRIN [Concomitant]
  8. ABILIFY [Concomitant]

REACTIONS (1)
  - SUICIDE ATTEMPT [None]
